FAERS Safety Report 18944478 (Version 4)
Quarter: 2021Q4

REPORT INFORMATION
  Report Type: Report from Study
  Country: US (occurrence: US)
  Receive Date: 20210226
  Receipt Date: 20211014
  Transmission Date: 20220303
  Serious: Yes (Death, Other)
  Sender: FDA-Public Use
  Company Number: US-ACADIA PHARMACEUTICALS INC.-ACA-2021-PIM-000490

PATIENT
  Sex: Female
  Weight: 49 kg

DRUGS (4)
  1. NUPLAZID [Suspect]
     Active Substance: PIMAVANSERIN TARTRATE
     Indication: Parkinson^s disease psychosis
     Dosage: 34 MILLIGRAM, QD
     Route: 065
     Dates: start: 202101, end: 2021
  2. NUPLAZID [Suspect]
     Active Substance: PIMAVANSERIN TARTRATE
     Indication: Hallucination
     Dosage: 34 MILLIGRAM, QD
     Route: 048
     Dates: start: 202102, end: 202109
  3. NUPLAZID [Suspect]
     Active Substance: PIMAVANSERIN TARTRATE
     Indication: Delusion
  4. DROXIDOPA [Concomitant]
     Active Substance: DROXIDOPA

REACTIONS (9)
  - Multiple system atrophy [Fatal]
  - Disease progression [Fatal]
  - Dysphagia [Unknown]
  - Delusion [Unknown]
  - Mobility decreased [Unknown]
  - Speech disorder [Unknown]
  - Delusion [Recovering/Resolving]
  - Drug ineffective [Unknown]
  - Drug ineffective [Unknown]
